FAERS Safety Report 4808584-6 (Version None)
Quarter: 2005Q4

REPORT INFORMATION
  Report Type: 
  Country: None (occurrence: None)
  Receive Date: 20051025
  Receipt Date: 20051013
  Transmission Date: 20060501
  Serious: Yes (Hospitalization)
  Sender: FDA-Public Use
  Company Number: FR-GLAXOSMITHKLINE-B0397411A

PATIENT
  Age: 84 Year
  Sex: Female

DRUGS (9)
  1. DEROXAT [Suspect]
     Indication: DEPRESSION
     Route: 048
     Dates: start: 20050101, end: 20050628
  2. TAHOR [Concomitant]
     Route: 065
  3. ZANIDIP [Concomitant]
     Route: 065
  4. KARDEGIC [Concomitant]
     Route: 065
  5. DIFFU K [Concomitant]
     Route: 065
  6. ADANCOR [Concomitant]
     Route: 065
  7. IMOVANE [Concomitant]
     Route: 065
  8. EUPANTOL [Concomitant]
     Route: 065
  9. TRANSIPEG [Concomitant]
     Route: 065

REACTIONS (6)
  - CIRCADIAN RHYTHM SLEEP DISORDER [None]
  - CONFUSIONAL STATE [None]
  - DISORIENTATION [None]
  - HYPONATRAEMIA [None]
  - OBSESSIVE THOUGHTS [None]
  - SLEEP DISORDER [None]
